FAERS Safety Report 17269509 (Version 1)
Quarter: 2020Q1

REPORT INFORMATION
  Report Type: Spontaneous
  Country: CA (occurrence: CA)
  Receive Date: 20200114
  Receipt Date: 20200114
  Transmission Date: 20200409
  Serious: Yes (Hospitalization)
  Sender: FDA-Public Use
  Company Number: CA-TEVA-2020-CA-1167611

PATIENT
  Age: 39 Year
  Sex: Male
  Weight: 99 kg

DRUGS (1)
  1. BUPRENORPHINE HYDROCHLORIDE/ NALOXONE HYDROCHLORIDE [Suspect]
     Active Substance: BUPRENORPHINE HYDROCHLORIDE\NALOXONE HYDROCHLORIDE
     Indication: PRODUCT USED FOR UNKNOWN INDICATION
     Route: 065

REACTIONS (2)
  - Drug screen positive [Unknown]
  - Drug withdrawal syndrome [Unknown]
